FAERS Safety Report 17703384 (Version 3)
Quarter: 2020Q2

REPORT INFORMATION
  Report Type: Spontaneous
  Country: CZ (occurrence: CZ)
  Receive Date: 20200423
  Receipt Date: 20200522
  Transmission Date: 20200714
  Serious: Yes (Other)
  Sender: FDA-Public Use
  Company Number: CZ-AUROBINDO-AUR-APL-2020-019965

PATIENT
  Age: 66 Year
  Sex: Male
  Weight: 103 kg

DRUGS (4)
  1. DULAGLUTIDE. [Concomitant]
     Active Substance: DULAGLUTIDE
     Indication: PRODUCT USED FOR UNKNOWN INDICATION
     Dosage: 1.5 MILLIGRAM, 2 WEEK
     Route: 065
     Dates: start: 2019
  2. METFORMIN [Suspect]
     Active Substance: METFORMIN HYDROCHLORIDE
     Indication: TYPE 2 DIABETES MELLITUS
     Dosage: 1500 MILLIGRAM, ONCE A DAY
     Route: 065
     Dates: start: 201512
  3. DENOSUMAB [Concomitant]
     Active Substance: DENOSUMAB
     Indication: PROPHYLAXIS
     Dosage: UNK
     Route: 065
  4. INSULIN GLARGINE [Concomitant]
     Active Substance: INSULIN GLARGINE
     Indication: PRODUCT USED FOR UNKNOWN INDICATION
     Dosage: 24 UNITS/VIAL, ONCE A DAY
     Route: 065
     Dates: start: 2017

REACTIONS (5)
  - Blood glucose increased [Recovering/Resolving]
  - Necrosis [Unknown]
  - Condition aggravated [Recovering/Resolving]
  - Drug intolerance [Recovered/Resolved]
  - Mass [Unknown]

NARRATIVE: CASE EVENT DATE: 201901
